FAERS Safety Report 25615886 (Version 1)
Quarter: 2025Q3

REPORT INFORMATION
  Report Type: Spontaneous
  Country: US (occurrence: US)
  Receive Date: 20250729
  Receipt Date: 20250729
  Transmission Date: 20251020
  Serious: Yes (Hospitalization, Other)
  Sender: EXELA PHARMA SCIENCES
  Company Number: US-EXELAPHARMA-2025EXLA00128

PATIENT
  Age: 37 Year
  Sex: Male

DRUGS (3)
  1. FENTANYL CITRATE [Suspect]
     Active Substance: FENTANYL CITRATE
     Indication: Substance use
  2. COCAINE [Suspect]
     Active Substance: COCAINE
     Indication: Substance use
  3. NALOXONE [Concomitant]
     Active Substance: NALOXONE

REACTIONS (11)
  - Unresponsive to stimuli [Recovered/Resolved]
  - Dyspnoea [Recovering/Resolving]
  - Renal impairment [Recovering/Resolving]
  - Hyperkalaemia [Recovering/Resolving]
  - Acidosis [Recovering/Resolving]
  - Chest discomfort [Recovering/Resolving]
  - Pulmonary alveolar haemorrhage [Recovering/Resolving]
  - Rales [Recovering/Resolving]
  - Oedema peripheral [Recovering/Resolving]
  - Drug abuse [Unknown]
  - Respiratory failure [Recovering/Resolving]
